FAERS Safety Report 5080526-0 (Version None)
Quarter: 2006Q3

REPORT INFORMATION
  Report Type: 
  Country: None (occurrence: None)
  Receive Date: 20060720
  Receipt Date: 20050610
  Transmission Date: 20061208
  Serious: Yes (Hospitalization)
  Sender: FDA-Public Use
  Company Number: 2003147860US

PATIENT
  Age: 52 Year
  Sex: Female

DRUGS (6)
  1. CELEBREX [Suspect]
     Indication: ILL-DEFINED DISORDER
     Dosage: ORAL
     Route: 048
     Dates: start: 20000227
  2. PREMARIN [Concomitant]
  3. ZANTAC [Concomitant]
  4. PERCOCET [Concomitant]
  5. GLUCOPHAGE [Concomitant]
  6. POTASSIUM CHLORIDE [Concomitant]

REACTIONS (3)
  - BLOOD PRESSURE INADEQUATELY CONTROLLED [None]
  - HYPERTENSION [None]
  - OEDEMA PERIPHERAL [None]
